FAERS Safety Report 23634117 (Version 1)
Quarter: 2024Q1

REPORT INFORMATION
  Report Type: Spontaneous
  Country: NL (occurrence: NL)
  Receive Date: 20240314
  Receipt Date: 20240314
  Transmission Date: 20240410
  Serious: Yes (Other)
  Sender: FDA-Public Use
  Company Number: None

PATIENT
  Age: 45 Year
  Sex: Female
  Weight: 90 kg

DRUGS (1)
  1. CELECOXIB [Suspect]
     Active Substance: CELECOXIB
     Indication: Costochondritis
     Dosage: 1 PIECE PER DAY BRAND NAME NOT SPECIFIED
     Route: 065
     Dates: start: 20201004, end: 20230706

REACTIONS (2)
  - Stevens-Johnson syndrome [Recovered/Resolved]
  - Product substitution issue [Unknown]
